FAERS Safety Report 6436785-2 (Version None)
Quarter: 2009Q4

REPORT INFORMATION
  Report Type: 
  Country: None (occurrence: None)
  Receive Date: 20091109
  Receipt Date: 20091026
  Transmission Date: 20100525
  Serious: Yes (Hospitalization)
  Sender: FDA-Public Use
  Company Number: 2009S1008105

PATIENT
  Age: 58 Year
  Sex: Female

DRUGS (12)
  1. PHOSPHOSODA FLAVOR NOT SPECIFIED [Suspect]
     Indication: COLONOSCOPY
     Dosage: PO
     Route: 048
     Dates: start: 20080818, end: 20080818
  2. ASPIRIN [Concomitant]
  3. DEPAKOTE [Concomitant]
  4. HYDRALAZINE HCL [Concomitant]
  5. INSULIN [Concomitant]
  6. LISINOPRIL [Concomitant]
  7. SIMVASTATIN [Concomitant]
  8. NIFEDIPINE [Concomitant]
  9. LOPRESSOR [Concomitant]
  10. IMDUR [Concomitant]
  11. CHLORTHALIDONE [Concomitant]
  12. VITAMINS /90003601/ [Concomitant]

REACTIONS (9)
  - DECREASED APPETITE [None]
  - DIALYSIS [None]
  - NAUSEA [None]
  - NEPHROLITHIASIS [None]
  - OVERDOSE [None]
  - RENAL FAILURE ACUTE [None]
  - RENAL INJURY [None]
  - RENAL TUBULAR NECROSIS [None]
  - VOMITING [None]
